FAERS Safety Report 4874085-2 (Version None)
Quarter: 2005Q4

REPORT INFORMATION
  Report Type: 
  Country: None (occurrence: None)
  Receive Date: 20051201
  Receipt Date: 20050803
  Transmission Date: 20060501
  Serious: No
  Sender: FDA-Public Use
  Company Number: 2005PV000937

PATIENT
  Age: 63 Year
  Sex: Male
  Weight: 108.8633 kg

DRUGS (15)
  1. BYETTA [Suspect]
     Indication: DIABETES MELLITUS NON-INSULIN-DEPENDENT
     Dosage: 5 MCG;BID;SC
     Route: 058
     Dates: start: 20050802
  2. PLAVIX [Concomitant]
  3. TOPROLOL [Concomitant]
  4. DIOVAN [Concomitant]
  5. AMARYL [Concomitant]
  6. COZAAR [Concomitant]
  7. FOLIC ACID [Concomitant]
  8. ZOLOFT [Concomitant]
  9. LIPITOR [Concomitant]
  10. TRICOR [Concomitant]
  11. ACIPHEX [Concomitant]
  12. MULTIVITAMIN [Concomitant]
  13. ASPIRIN [Concomitant]
  14. ASCORBIC ACID [Concomitant]
  15. VITAMIN E [Concomitant]

REACTIONS (6)
  - BLOOD GLUCOSE DECREASED [None]
  - DECREASED APPETITE [None]
  - ENERGY INCREASED [None]
  - INJECTION SITE BRUISING [None]
  - INJECTION SITE SWELLING [None]
  - LETHARGY [None]
